FAERS Safety Report 5052617-1 (Version None)
Quarter: 2006Q3

REPORT INFORMATION
  Report Type: 
  Country: None (occurrence: None)
  Receive Date: 20060717
  Receipt Date: 20060710
  Transmission Date: 20061208
  Serious: Yes (Other)
  Sender: FDA-Public Use
  Company Number: 2006012772

PATIENT
  Age: 73 Year
  Sex: Male
  Weight: 100 kg

DRUGS (12)
  1. QUILONUM RETARD [Suspect]
     Route: 048
  2. AGOPTON [Suspect]
     Route: 048
  3. AMITRIPTYLIN [Suspect]
     Route: 048
  4. BERODUAL [Suspect]
     Route: 055
  5. DECORTIN [Suspect]
     Route: 048
  6. THEOPHYLLINE [Suspect]
     Route: 048
  7. FOSAMAX [Suspect]
     Route: 048
  8. KERLONE [Suspect]
     Route: 048
  9. METOCLOPRAMID [Suspect]
     Route: 048
  10. PANCREATIN TRIPLE STRENGTH CAP [Suspect]
     Route: 048
  11. TURFA [Suspect]
     Route: 048
  12. VERAPAMIL [Suspect]
     Route: 048

REACTIONS (2)
  - HYPOTENSION [None]
  - SUICIDE ATTEMPT [None]
